FAERS Safety Report 24915954 (Version 1)
Quarter: 2025Q1

REPORT INFORMATION
  Report Type: Report from Study
  Country: US (occurrence: US)
  Receive Date: 20250203
  Receipt Date: 20250203
  Transmission Date: 20250409
  Serious: Yes (Other)
  Sender: BAUSCH AND LOMB
  Company Number: US-BAUSCH-BL-2024-001650

PATIENT
  Age: 73 Year
  Sex: Male
  Weight: 148.91 kg

DRUGS (10)
  1. XIFAXAN [Suspect]
     Active Substance: RIFAXIMIN
     Indication: Hepatic encephalopathy
     Dosage: QUANTITY OF 60 FOR 30 DAYS WITH 11 REFILLS
     Route: 048
  2. LACTULOSE [Suspect]
     Active Substance: LACTULOSE
     Indication: Product used for unknown indication
     Dosage: 10 GRAM/15 ML
     Route: 048
  3. POTASSIUM CHLORIDE [Concomitant]
     Active Substance: POTASSIUM CHLORIDE
     Indication: Product used for unknown indication
     Dosage: ENTERIC RELEASE TABLET TAKE BY ORAL ROUTE 1 TIMES PER DAY WITH FOOD
     Route: 048
  4. LEVOCETIRIZINE HYDROCHLORIDE [Concomitant]
     Active Substance: LEVOCETIRIZINE HYDROCHLORIDE
     Indication: Product used for unknown indication
     Dosage: TAKE AT BEDTIME
     Route: 048
  5. LIVATONE PLUS [Concomitant]
     Indication: Product used for unknown indication
  6. CHOLINE;INOSITOL [Concomitant]
     Indication: Product used for unknown indication
  7. OZEMPIC [Concomitant]
     Active Substance: SEMAGLUTIDE
     Indication: Product used for unknown indication
     Dosage: 2 MG/ML SUBCUTANEOUS PEN INJECTOR ONCE A WEEK ON THE SAME DAY OF EACH WEEK.
     Route: 058
  8. TWINRIX [Concomitant]
     Active Substance: HEPATITIS A VIRUS STRAIN HM175 ANTIGEN (FORMALDEHYDE INACTIVATED)\HEPATITIS B VIRUS SUBTYPE ADW2 HBS
     Indication: Product used for unknown indication
  9. SPIRONOLACTONE [Concomitant]
     Active Substance: SPIRONOLACTONE
     Indication: Product used for unknown indication
     Route: 048
  10. FUROSEMIDE [Concomitant]
     Active Substance: FUROSEMIDE
     Indication: Product used for unknown indication
     Route: 048

REACTIONS (11)
  - Hepatic encephalopathy [Unknown]
  - Symptom recurrence [Unknown]
  - Arthritis [Unknown]
  - Accident [Unknown]
  - Tremor [Unknown]
  - Fall [Unknown]
  - Back pain [Unknown]
  - Dehydration [Unknown]
  - Fatigue [Unknown]
  - Dizziness [Unknown]
  - Inability to afford medication [Unknown]
